FAERS Safety Report 9270399 (Version 1)
Quarter: 2013Q2

REPORT INFORMATION
  Report Type: Spontaneous
  Country: CA (occurrence: CA)
  Receive Date: 20130503
  Receipt Date: 20130503
  Transmission Date: 20140414
  Serious: Yes (Other)
  Sender: FDA-Public Use
  Company Number: CA-ASTRAZENECA-2013SE28978

PATIENT
  Age: 764 Month
  Sex: Female

DRUGS (3)
  1. LOSEC [Suspect]
     Route: 048
  2. ACTEMRA [Suspect]
     Route: 065
     Dates: start: 20111117
  3. BIAXIN [Concomitant]
     Route: 048

REACTIONS (4)
  - Pseudomonas infection [Recovered/Resolved]
  - Haemorrhoidal haemorrhage [Not Recovered/Not Resolved]
  - Abdominal discomfort [Recovered/Resolved]
  - Headache [Unknown]
